FAERS Safety Report 19679647 (Version 2)
Quarter: 2021Q3

REPORT INFORMATION
  Report Type: Report from Study
  Country: IT (occurrence: IT)
  Receive Date: 20210810
  Receipt Date: 20210817
  Transmission Date: 20211014
  Serious: Yes (Other)
  Sender: FDA-Public Use
  Company Number: IT-TEVA-2021-IT-1940444

PATIENT
  Age: 49 Year
  Sex: Female

DRUGS (2)
  1. CLOPIXOL 200 MG/ML SOLUZIONE INIETTABILE A RILASCIO PROLUNGATO PER USO [Concomitant]
     Active Substance: ZUCLOPENTHIXOL
     Dosage: WITH PROLONGED RELEASE FOR USE, 200 MG
     Route: 030
  2. LORAZEPAM. [Suspect]
     Active Substance: LORAZEPAM
     Indication: DRUG ABUSE
     Dosage: 1 DF
     Route: 048
     Dates: start: 20210608, end: 20210608

REACTIONS (3)
  - Alcohol abuse [Recovering/Resolving]
  - Drug abuse [Recovering/Resolving]
  - Sopor [Recovering/Resolving]

NARRATIVE: CASE EVENT DATE: 20210608
